FAERS Safety Report 5900056-0 (Version None)
Quarter: 2008Q3

REPORT INFORMATION
  Report Type: 
  Country: None (occurrence: None)
  Receive Date: 20080925
  Receipt Date: 20080925
  Transmission Date: 20090109
  Serious: Yes (Life-Threatening)
  Sender: FDA-Public Use
  Company Number: None

PATIENT
  Age: 38 Year
  Sex: Female

DRUGS (1)
  1. BACITRACIN [Suspect]
     Indication: VAGINAL DOUCHING
     Dates: start: 20080801, end: 20080801

REACTIONS (1)
  - ANAPHYLACTIC REACTION [None]
